FAERS Safety Report 10758469 (Version 1)
Quarter: 2015Q1

REPORT INFORMATION
  Report Type: Spontaneous
  Country: DE (occurrence: DE)
  Receive Date: 20150203
  Receipt Date: 20150203
  Transmission Date: 20150721
  Serious: Yes (Life-Threatening, Hospitalization, Other)
  Sender: FDA-Public Use
  Company Number: DE-009507513-1412DEU006604

PATIENT
  Age: 77 Year
  Sex: Male
  Weight: 82 kg

DRUGS (8)
  1. SIMVASTATIN. [Suspect]
     Active Substance: SIMVASTATIN
     Dosage: 10 MG, QD
     Route: 048
     Dates: end: 2014
  2. FALITHROM [Concomitant]
     Active Substance: PHENPROCOUMON
     Dosage: UNK
     Dates: end: 20141029
  3. TILIDIN [Concomitant]
     Active Substance: NALOXONE HYDROCHLORIDE\TILIDINE HYDROCHLORIDE
     Dosage: UNK
     Dates: end: 20141029
  4. NOOTROP 1200 [Concomitant]
     Dosage: 1200 MG, QD
     Route: 048
     Dates: end: 2014
  5. BISOPROLOL [Concomitant]
     Active Substance: BISOPROLOL
     Dosage: 2.5 MG, QD
     Route: 048
     Dates: end: 2014
  6. MOLSIDOMIN RET. 8 MG [Concomitant]
     Dosage: 4 MG, BID
     Route: 048
     Dates: end: 2014
  7. ALLOPURINOL. [Concomitant]
     Active Substance: ALLOPURINOL
     Dosage: 100 MG, QD
     Route: 048
     Dates: end: 2014
  8. PANTOPRAZOLE [Concomitant]
     Active Substance: PANTOPRAZOLE SODIUM
     Dosage: 40 MG, UNK
     Dates: end: 20141029

REACTIONS (9)
  - Cardiomyopathy [Recovered/Resolved]
  - Acute hepatic failure [Recovered/Resolved]
  - Rhabdomyolysis [Recovered/Resolved]
  - Thrombocytopenia [Recovered/Resolved]
  - Leptospirosis [Recovered/Resolved]
  - Renal impairment [Recovered/Resolved]
  - Sepsis [Recovered/Resolved]
  - Anaemia [Recovered/Resolved]
  - Syncope [Recovered/Resolved]

NARRATIVE: CASE EVENT DATE: 201410
